FAERS Safety Report 12492952 (Version 2)
Quarter: 2016Q3

REPORT INFORMATION
  Report Type: Spontaneous
  Country: US (occurrence: US)
  Receive Date: 20160623
  Receipt Date: 20160718
  Transmission Date: 20161109
  Serious: No
  Sender: FDA-Public Use
  Company Number: US-ACTELION-A-US2016-137945

PATIENT
  Age: 66 Year
  Sex: Female
  Weight: 61.22 kg

DRUGS (3)
  1. NORVASC [Concomitant]
     Active Substance: AMLODIPINE BESYLATE
  2. UPTRAVI [Suspect]
     Active Substance: SELEXIPAG
     Indication: PULMONARY HYPERTENSION
     Dosage: 200 MCG, BID
     Route: 048
     Dates: start: 20160602
  3. ADCIRCA [Concomitant]
     Active Substance: TADALAFIL

REACTIONS (7)
  - Feeling abnormal [Unknown]
  - Pain in jaw [Unknown]
  - Influenza like illness [Unknown]
  - Malaise [Unknown]
  - Unevaluable event [Unknown]
  - Nausea [Unknown]
  - Fatigue [Unknown]
